FAERS Safety Report 6223969-1 (Version None)
Quarter: 2009Q2

REPORT INFORMATION
  Report Type: 
  Country: None (occurrence: None)
  Receive Date: 20090612
  Receipt Date: 20090305
  Transmission Date: 20091009
  Serious: No
  Sender: FDA-Public Use
  Company Number: US-ABBOTT-09P-163-0561021-00

PATIENT
  Sex: Female
  Weight: 52.664 kg

DRUGS (1)
  1. HUMIRA [Suspect]
     Indication: PSORIASIS
     Dosage: DAY 8
     Dates: start: 20090217

REACTIONS (5)
  - FATIGUE [None]
  - PRODUCTIVE COUGH [None]
  - RHINORRHOEA [None]
  - SECRETION DISCHARGE [None]
  - SNEEZING [None]
